FAERS Safety Report 5018090-4 (Version None)
Quarter: 2006Q2

REPORT INFORMATION
  Report Type: 
  Country: None (occurrence: None)
  Receive Date: 20060530
  Receipt Date: 20060517
  Transmission Date: 20061013
  Serious: Yes (Hospitalization)
  Sender: FDA-Public Use
  Company Number: 2005024541

PATIENT
  Age: 79 Year
  Sex: Female
  Weight: 72.5755 kg

DRUGS (6)
  1. CELEBREX [Suspect]
     Indication: ARTHRITIS
     Dosage: 200 MG (200 MG, 1 IN 1 D), ORAL
     Route: 048
  2. ALL OTHER THERAPEUTIC PRODUCTS (ALL OTHER THERAPEUTIC PRODUCTS) [Suspect]
     Indication: FALL
     Dosage: EPIDURAL
     Route: 008
  3. LIPITOR [Concomitant]
  4. NORVASC [Concomitant]
  5. DETROL LA [Concomitant]
  6. LASIX [Concomitant]

REACTIONS (12)
  - BODY HEIGHT DECREASED [None]
  - BURNING SENSATION [None]
  - DRUG INEFFECTIVE [None]
  - FALL [None]
  - FEELING ABNORMAL [None]
  - KIDNEY INFECTION [None]
  - MICTURITION URGENCY [None]
  - PAIN IN EXTREMITY [None]
  - SKIN LACERATION [None]
  - SPINAL COLUMN STENOSIS [None]
  - ULCER HAEMORRHAGE [None]
  - VOMITING [None]
